FAERS Safety Report 5252224-1 (Version None)
Quarter: 2007Q1

REPORT INFORMATION
  Report Type: 
  Country: None (occurrence: None)
  Receive Date: 20070301
  Receipt Date: 20070220
  Transmission Date: 20070707
  Serious: Yes (Other)
  Sender: FDA-Public Use
  Company Number: DE-JNJFOC-20070204664

PATIENT
  Sex: Male

DRUGS (1)
  1. RISPERDAL CONSTA [Suspect]
     Indication: PSYCHOTIC DISORDER
     Dosage: EVERY 2-3 WEEKS
     Route: 030

REACTIONS (1)
  - VENOUS THROMBOSIS LIMB [None]
